FAERS Safety Report 19753448 (Version 1)
Quarter: 2021Q3

REPORT INFORMATION
  Report Type: Spontaneous
  Country: US (occurrence: US)
  Receive Date: 20210826
  Receipt Date: 20210826
  Transmission Date: 20211014
  Serious: No
  Sender: FDA-Public Use
  Company Number: None

PATIENT
  Age: 67 Year
  Sex: Female
  Weight: 70.4 kg

DRUGS (2)
  1. CYCLOPHOSPAMIDE Q3W [Concomitant]
     Dates: start: 20210712, end: 20210712
  2. DOCETAXEL 75 MG/M2 [Suspect]
     Active Substance: DOCETAXEL
     Indication: BREAST CANCER
     Dosage: OTHER FREQUENCY:Q3W;?
     Dates: start: 20210712, end: 20210712

REACTIONS (7)
  - Nausea [None]
  - Flushing [None]
  - Infusion [None]
  - Visual impairment [None]
  - Hypertension [None]
  - Infusion related reaction [None]
  - Back pain [None]

NARRATIVE: CASE EVENT DATE: 20210712
